FAERS Safety Report 5088847-2 (Version None)
Quarter: 2006Q3

REPORT INFORMATION
  Report Type: 
  Country: None (occurrence: None)
  Receive Date: 20060824
  Receipt Date: 20060824
  Transmission Date: 20061208
  Serious: Yes (Death)
  Sender: FDA-Public Use
  Company Number: None

PATIENT
  Sex: Male
  Weight: 90.9 kg

DRUGS (8)
  1. MITES ALLERGENIC - MULTIPLES DISOLUTIONS - GREER [Suspect]
     Indication: HOUSE DUST ALLERGY
     Dosage: VARIOUS  WEEKLY  INTREDERMA
     Route: 023
     Dates: start: 20060810
  2. COCKROACH ALLERGENIC - MULTIPLES DISOLUTIONS - GREER [Suspect]
     Indication: HOUSE DUST ALLERGY
     Dosage: VARIOUS   WEEKLY   INTREDERMA
     Dates: start: 20060810
  3. IBUPROFEN [Concomitant]
  4. ACYCLOVIR [Concomitant]
  5. MONTELUKAS [Concomitant]
  6. ALBUTEROL [Concomitant]
  7. MOMETASONE FUROATE [Concomitant]
  8. FORMOTEROL [Concomitant]

REACTIONS (6)
  - COUGH [None]
  - DYSPNOEA [None]
  - EYE OEDEMA [None]
  - LOCALISED OEDEMA [None]
  - PRURITUS [None]
  - TONGUE OEDEMA [None]
